FAERS Safety Report 5882375-X (Version None)
Quarter: 2008Q3

REPORT INFORMATION
  Report Type: 
  Country: None (occurrence: None)
  Receive Date: 20080913
  Receipt Date: 20080731
  Transmission Date: 20090109
  Serious: No
  Sender: FDA-Public Use
  Company Number: US-ABBOTT-08P-163-0468261-00

PATIENT
  Sex: Male
  Weight: 131.66 kg

DRUGS (4)
  1. HUMIRA [Suspect]
     Indication: PSORIATIC ARTHROPATHY
     Route: 050
     Dates: start: 20080717
  2. HUMIRA [Suspect]
     Indication: PSORIASIS
  3. NAPROXEN [Concomitant]
     Indication: ARTHRALGIA
     Route: 048
  4. ISONIAZID [Concomitant]
     Indication: TUBERCULIN TEST POSITIVE
     Route: 048

REACTIONS (1)
  - ACCIDENTAL EXPOSURE [None]
